FAERS Safety Report 7953863-7 (Version None)
Quarter: 2011Q4

REPORT INFORMATION
  Report Type: 
  Country: None (occurrence: None)
  Receive Date: 20111202
  Receipt Date: 20111129
  Transmission Date: 20120403
  Serious: No
  Sender: FDA-Public Use
  Company Number: US-PFIZER INC-2011291550

PATIENT
  Sex: Male
  Weight: 98.866 kg

DRUGS (2)
  1. METFORMIN [Concomitant]
     Indication: TYPE 2 DIABETES MELLITUS
     Dosage: 500 MG, 2X/DAY
  2. ARTHROTEC [Suspect]
     Indication: OSTEOARTHRITIS
     Dosage: UNK
     Route: 048
     Dates: start: 20111117, end: 20111101

REACTIONS (4)
  - EYE MOVEMENT DISORDER [None]
  - HYPERHIDROSIS [None]
  - HEAD DISCOMFORT [None]
  - ASTHENIA [None]
